FAERS Safety Report 6936253-5 (Version None)
Quarter: 2010Q3

REPORT INFORMATION
  Report Type: 
  Country: None (occurrence: None)
  Receive Date: 20100823
  Receipt Date: 20100811
  Transmission Date: 20110219
  Serious: Yes (Death, Hospitalization)
  Sender: FDA-Public Use
  Company Number: KR-PFIZER INC-2009283497

PATIENT
  Age: 56 Year
  Sex: Male
  Weight: 78 kg

DRUGS (10)
  1. VORICONAZOLE [Suspect]
     Indication: ASPERGILLOSIS
     Dosage: 300 MG, 2X/DAY
     Route: 042
     Dates: start: 20071122, end: 20071130
  2. AMPHOTERICIN B [Suspect]
  3. IMIPENEM [Concomitant]
     Indication: PNEUMONIA FUNGAL
     Dosage: 500 MG, 3X/DAY
     Route: 041
     Dates: start: 20071116, end: 20071204
  4. VANCOMYCIN [Concomitant]
     Indication: PNEUMONIA FUNGAL
     Dosage: 1000 MG, 2X/DAY
     Route: 041
     Dates: start: 20071116, end: 20071202
  5. ACETAMINOPHEN [Concomitant]
     Indication: PYREXIA
     Dosage: 650 MG, 3X/DAY
     Route: 048
     Dates: start: 20071112, end: 20071130
  6. ACETAMINOPHEN [Concomitant]
     Indication: PAIN
  7. NICORANDIL [Concomitant]
     Indication: ANGINA PECTORIS
     Dosage: 5 MG, 2X/DAY
     Route: 048
     Dates: start: 20071025, end: 20071129
  8. CODEINE [Concomitant]
     Indication: COUGH
     Dosage: 40 MG, 3X/DAY
     Route: 048
     Dates: start: 20071117, end: 20071127
  9. NEUTROGIN [Concomitant]
     Indication: PANCYTOPENIA
     Dosage: 250 MG, 2X/DAY
     Route: 041
     Dates: start: 20071107, end: 20071127
  10. K-CONTIN CONTINUS [Concomitant]
     Indication: HYPOKALAEMIA
     Dosage: 600 MG, 3X/DAY
     Route: 048
     Dates: start: 20071108, end: 20071125

REACTIONS (4)
  - ACUTE MYELOID LEUKAEMIA [None]
  - HEPATOTOXICITY [None]
  - NEPHROPATHY TOXIC [None]
  - PNEUMONIA [None]
